FAERS Safety Report 6920215-8 (Version None)
Quarter: 2010Q3

REPORT INFORMATION
  Report Type: 
  Country: None (occurrence: None)
  Receive Date: 20100809
  Receipt Date: 20100729
  Transmission Date: 20110219
  Serious: Yes (Death)
  Sender: FDA-Public Use
  Company Number: AMAG201000317

PATIENT
  Age: 68 Year
  Sex: Male
  Weight: 80.4 kg

DRUGS (7)
  1. FERAHEME [Suspect]
     Indication: IRON DEFICIENCY ANAEMIA
     Dosage: 510 MG, SINGLE, INTRAVENOUS
     Route: 042
     Dates: start: 20100729, end: 20100729
  2. ACETAMINOPHEN [Suspect]
     Dates: start: 20100729, end: 20100729
  3. ALTEPLASE RECOMBINANT (ALTEPLASE) [Concomitant]
  4. BENADRYL (DIPHENPHYDRAMINE HYDROCHLORIDE) [Concomitant]
  5. EPOGEN [Concomitant]
  6. XANAX [Concomitant]
  7. ZYPREXA [Concomitant]

REACTIONS (2)
  - BACK PAIN [None]
  - DECUBITUS ULCER [None]
